FAERS Safety Report 5711821-7 (Version None)
Quarter: 2008Q2

REPORT INFORMATION
  Report Type: 
  Country: None (occurrence: None)
  Receive Date: 20080421
  Receipt Date: 20080410
  Transmission Date: 20081010
  Serious: Yes (Life-Threatening)
  Sender: FDA-Public Use
  Company Number: BR-PFIZER INC-2008032439

PATIENT
  Sex: Male
  Weight: 64 kg

DRUGS (2)
  1. MARAVIROC [Suspect]
     Indication: HIV INFECTION
     Route: 048
     Dates: start: 20080225, end: 20080409
  2. MEGESTROL ACETATE [Concomitant]
     Route: 048
     Dates: start: 20070828, end: 20080409

REACTIONS (1)
  - SPLENIC NEOPLASM MALIGNANCY UNSPECIFIED [None]
